FAERS Safety Report 7526147-9 (Version None)
Quarter: 2011Q2

REPORT INFORMATION
  Report Type: 
  Country: None (occurrence: None)
  Receive Date: 20110606
  Receipt Date: 20110603
  Transmission Date: 20111010
  Serious: Yes (Hospitalization)
  Sender: FDA-Public Use
  Company Number: US-BRISTOL-MYERS SQUIBB COMPANY-15654155

PATIENT
  Age: 67 Year
  Sex: Female

DRUGS (2)
  1. ATARAX [Concomitant]
  2. IPILIMUMAB [Suspect]
     Indication: MALIGNANT MELANOMA
     Dosage: 228MG:10FEB2011 225MG:03MAR2011 225MG:24MAR2011
     Route: 042
     Dates: start: 20110210, end: 20110324

REACTIONS (2)
  - DEHYDRATION [None]
  - DIARRHOEA [None]
